FAERS Safety Report 9353714 (Version 2)
Quarter: 2013Q2

REPORT INFORMATION
  Report Type: Report from Study
  Country: US (occurrence: US)
  Receive Date: 20130618
  Receipt Date: 20130626
  Transmission Date: 20140414
  Serious: Yes (Other)
  Sender: FDA-Public Use
  Company Number: US-PFIZER INC-2013179438

PATIENT
  Age: 72 Year
  Sex: Female

DRUGS (3)
  1. ATORVASTATIN CALCIUM [Suspect]
     Indication: DYSLIPIDAEMIA
     Dosage: 40 MG, UNK
  2. ATORVASTATIN CALCIUM [Suspect]
     Indication: LOW DENSITY LIPOPROTEIN INCREASED
  3. ATORVASTATIN CALCIUM [Suspect]
     Indication: HIGH DENSITY LIPOPROTEIN DECREASED

REACTIONS (4)
  - Myalgia [Unknown]
  - Mobility decreased [Unknown]
  - Quality of life decreased [Unknown]
  - Drug intolerance [Unknown]
